FAERS Safety Report 6652013-7 (Version None)
Quarter: 2010Q1

REPORT INFORMATION
  Report Type: 
  Country: None (occurrence: None)
  Receive Date: 20100323
  Receipt Date: 20100311
  Transmission Date: 20100710
  Serious: Yes (Other)
  Sender: FDA-Public Use
  Company Number: 1000012382

PATIENT
  Age: 36 Year
  Sex: Female

DRUGS (6)
  1. ESCITALOPRAM OXALATE [Suspect]
     Indication: PANIC DISORDER
     Dosage: 5 MG (5 MG,1 IN 1 D),ORAL
     Route: 048
     Dates: start: 20091101, end: 20091101
  2. ESCITALOPRAM OXALATE [Suspect]
     Indication: PANIC DISORDER
     Dosage: 5 MG (5 MG,1 IN 1 D),ORAL
     Route: 048
     Dates: start: 20091230, end: 20100105
  3. ESCITALOPRAM [Suspect]
     Indication: PANIC DISORDER
     Dosage: 10 MG (10 MG,1 IN 1 D),ORAL ; 5 MG (5 MG,1 IN 1 D),ORAL
     Route: 048
     Dates: start: 20100106, end: 20100215
  4. ESCITALOPRAM [Suspect]
     Indication: PANIC DISORDER
     Dosage: 10 MG (10 MG,1 IN 1 D),ORAL ; 5 MG (5 MG,1 IN 1 D),ORAL
     Route: 048
     Dates: start: 20100219
  5. XANAX [Concomitant]
  6. RETAFER [Concomitant]

REACTIONS (5)
  - DERMATITIS ALLERGIC [None]
  - EYE SWELLING [None]
  - MENORRHAGIA [None]
  - OEDEMA MOUTH [None]
  - PRURITUS [None]
